FAERS Safety Report 5461016-X (Version None)
Quarter: 2007Q3

REPORT INFORMATION
  Report Type: 
  Country: None (occurrence: None)
  Receive Date: 20070822
  Receipt Date: 20061228
  Transmission Date: 20080115
  Serious: Yes (Other)
  Sender: FDA-Public Use
  Company Number: 2007000181

PATIENT
  Age: 72 Year
  Sex: Female
  Weight: 56.2 kg

DRUGS (4)
  1. NORVASC [Suspect]
     Indication: HYPERTENSION
     Dosage: 5 MG (5 MG, 1 IN 1 D); 2.5 MG (2.5 MG, 1 IN 1 D)
  2. TOPROL XL (METROPROL SUCCINATE) [Concomitant]
  3. DIOVAN [Concomitant]
  4. PREMARIN [Concomitant]

REACTIONS (3)
  - BLOOD PRESSURE INADEQUATELY CONTROLLED [None]
  - OEDEMA PERIPHERAL [None]
  - PETECHIAE [None]
